FAERS Safety Report 17307101 (Version 3)
Quarter: 2020Q2

REPORT INFORMATION
  Report Type: Report from Study
  Country: None (occurrence: US)
  Receive Date: 20200123
  Receipt Date: 20200430
  Transmission Date: 20200713
  Serious: No
  Sender: FDA-Public Use
  Company Number: US-ABBVIE-20K-163-3243367-00

PATIENT
  Age: 31 Year
  Sex: Female
  Weight: 50.39 kg

DRUGS (3)
  1. HUMIRA [Suspect]
     Active Substance: ADALIMUMAB
     Indication: CROHN^S DISEASE
     Route: 058
     Dates: start: 201806
  2. VITAMIN D [Concomitant]
     Active Substance: VITAMIN D NOS
     Indication: PRODUCT USED FOR UNKNOWN INDICATION
  3. HUMIRA [Suspect]
     Active Substance: ADALIMUMAB
     Indication: POLYARTHRITIS

REACTIONS (10)
  - Joint swelling [Unknown]
  - Joint swelling [Unknown]
  - Contusion [Unknown]
  - Joint swelling [Recovering/Resolving]
  - Joint warmth [Recovering/Resolving]
  - Contusion [Unknown]
  - Paraesthesia [Unknown]
  - Arthralgia [Unknown]
  - Joint effusion [Unknown]
  - Hypoaesthesia [Unknown]

NARRATIVE: CASE EVENT DATE: 202001
